FAERS Safety Report 5426730-0 (Version None)
Quarter: 2007Q3

REPORT INFORMATION
  Report Type: 
  Country: None (occurrence: None)
  Receive Date: 20070827
  Receipt Date: 20070817
  Transmission Date: 20080115
  Serious: Yes (Hospitalization)
  Sender: FDA-Public Use
  Company Number: JP-PFIZER INC-2007058716

PATIENT
  Sex: Male

DRUGS (16)
  1. LIPITOR [Suspect]
     Indication: HYPERCHOLESTEROLAEMIA
     Route: 048
     Dates: start: 20070309, end: 20070621
  2. RISPERDAL [Suspect]
     Indication: CONVERSION DISORDER
     Route: 048
     Dates: start: 20070115, end: 20070621
  3. BROTIZOLAM [Concomitant]
     Route: 048
  4. DORAL [Concomitant]
     Route: 048
     Dates: start: 20070119
  5. CLONAZEPAM [Concomitant]
     Route: 048
     Dates: start: 20061109
  6. CLONAZEPAM [Concomitant]
     Route: 048
     Dates: start: 20061109
  7. LEVOTOMIN [Concomitant]
     Route: 048
     Dates: start: 20070618
  8. CHLORPROMAZINE [Concomitant]
     Route: 048
     Dates: start: 20070316, end: 20070709
  9. VALPROATE SODIUM [Concomitant]
     Route: 048
     Dates: start: 20070330
  10. LANSOPRAZOLE [Concomitant]
     Route: 048
     Dates: start: 20061219
  11. ESTAZOLAM [Concomitant]
     Dosage: DAILY DOSE:1MG-FREQ:DAILY AS NEEDED
     Route: 048
     Dates: start: 20070201
  12. DEPAS [Concomitant]
     Dosage: DAILY DOSE:.5MG-FREQ:DAILY AS NEEDED
     Route: 048
     Dates: start: 20061026
  13. TRYPTANOL [Concomitant]
     Dosage: DAILY DOSE:50MG-FREQ:DAILY (DIVIDED IN 3 DOSES)
     Route: 048
     Dates: start: 20070126
  14. VOLTAREN [Concomitant]
     Dosage: DAILY DOSE:25MG-FREQ:DAILY AS NEEDED
     Route: 048
     Dates: start: 20061219
  15. HUMALOG [Concomitant]
  16. NOVOLIN 50/50 [Concomitant]
     Dates: start: 20070622

REACTIONS (1)
  - DIABETES MELLITUS [None]
